FAERS Safety Report 22086044 (Version 1)
Quarter: 2023Q1

REPORT INFORMATION
  Report Type: Spontaneous
  Country: JP (occurrence: JP)
  Receive Date: 20230310
  Receipt Date: 20230310
  Transmission Date: 20230418
  Serious: Yes (Death, Hospitalization)
  Sender: FDA-Public Use
  Company Number: JP-MYE-2023M1025031AA

PATIENT
  Age: 88 Year
  Sex: Female

DRUGS (4)
  1. PREDNISOLONE [Suspect]
     Active Substance: PREDNISOLONE
     Indication: Pemphigus
     Dosage: 30 MILLIGRAM, QD, 1 MONTH PREVIOUSLY
     Route: 048
  2. PREDNISOLONE [Suspect]
     Active Substance: PREDNISOLONE
     Dosage: 50 MILLIGRAM, QD
     Route: 048
  3. ACYCLOVIR [Suspect]
     Active Substance: ACYCLOVIR
     Indication: Eczema herpeticum
     Dosage: UNK
     Route: 065
  4. METHYLPREDNISOLONE [Suspect]
     Active Substance: METHYLPREDNISOLONE
     Indication: Pemphigus
     Dosage: 1000 MILLIGRAM, PULSE THERAPY FOR CONSECUTIVE 3 DAYS
     Route: 065

REACTIONS (2)
  - Eczema herpeticum [Fatal]
  - Drug ineffective [Fatal]
